FAERS Safety Report 21722273 (Version 1)
Quarter: 2022Q4

REPORT INFORMATION
  Report Type: Spontaneous
  Country: US (occurrence: None)
  Receive Date: 20221212
  Receipt Date: 20221212
  Transmission Date: 20230112
  Serious: Yes (Death, Hospitalization)
  Sender: FDA-Public Use
  Company Number: None

PATIENT
  Age: 65 Year
  Sex: Female

DRUGS (6)
  1. ADEMPAS [Suspect]
     Active Substance: RIOCIGUAT
     Indication: Pulmonary hypertension
     Dosage: FREQUENCY : 3 TIMES A DAY;?
     Route: 048
     Dates: start: 20220408, end: 20221024
  2. OPSUMIT [Concomitant]
     Active Substance: MACITENTAN
  3. ENOXAPARIN [Concomitant]
     Active Substance: ENOXAPARIN
  4. ONDANSETRON [Concomitant]
     Active Substance: ONDANSETRON
  5. APIXABAN [Concomitant]
     Active Substance: APIXABAN
  6. FUROSEMIDE [Concomitant]
     Active Substance: FUROSEMIDE

REACTIONS (7)
  - Arthralgia [None]
  - Retroperitoneal haematoma [None]
  - Haemoglobin decreased [None]
  - Condition aggravated [None]
  - Acute respiratory failure [None]
  - Pleural effusion [None]
  - Acute kidney injury [None]

NARRATIVE: CASE EVENT DATE: 20221024
